FAERS Safety Report 20872685 (Version 1)
Quarter: 2022Q2

REPORT INFORMATION
  Report Type: Spontaneous
  Country: IN (occurrence: IN)
  Receive Date: 20220525
  Receipt Date: 20220525
  Transmission Date: 20220721
  Serious: Yes (Other)
  Sender: FDA-Public Use
  Company Number: IN-PFIZER INC-2021875192

PATIENT
  Age: 70 Year
  Sex: Female

DRUGS (8)
  1. PALBOCICLIB [Suspect]
     Active Substance: PALBOCICLIB
     Dosage: 100 MG, 1X/DAY
     Route: 048
     Dates: start: 20210709, end: 20211110
  2. FEMARA [Concomitant]
     Active Substance: LETROZOLE
     Dosage: UNK, DAILY
  3. MEGASTY [Concomitant]
     Dosage: 160 MG, DAILY
  4. ZOLDONAT [Concomitant]
     Dosage: 4 MG, MONTHLY
     Route: 042
  5. MINERALS\VITAMINS [Concomitant]
     Active Substance: MINERALS\VITAMINS
     Dosage: UNK, DAILY
  6. TORSEMIDE [Concomitant]
     Active Substance: TORSEMIDE
     Dosage: 10 MG, DAILY
  7. CRESP [Concomitant]
     Dosage: 200 MG, WEEKLY
     Route: 058
  8. NEUKINE [Concomitant]
     Dosage: 300 MG, WEEKLY
     Route: 058

REACTIONS (18)
  - Cerebral atrophy [Unknown]
  - Haematochezia [Unknown]
  - Haemoglobin decreased [Unknown]
  - White blood cell count decreased [Unknown]
  - Laboratory test abnormal [Unknown]
  - Asthenia [Unknown]
  - Hypophagia [Unknown]
  - Renal disorder [Unknown]
  - Breast pain [Unknown]
  - Abdominal pain [Unknown]
  - Bacteriuria [Unknown]
  - Blood creatinine decreased [Unknown]
  - Glucose urine present [Unknown]
  - Blood creatinine increased [Unknown]
  - Blood glucose increased [Unknown]
  - Dyspnoea [Unknown]
  - Peripheral swelling [Unknown]
  - White matter lesion [Unknown]
